FAERS Safety Report 4946129-0 (Version None)
Quarter: 2006Q1

REPORT INFORMATION
  Report Type: 
  Country: None (occurrence: None)
  Receive Date: 20060316
  Receipt Date: 20050818
  Transmission Date: 20060701
  Serious: Yes (Hospitalization)
  Sender: FDA-Public Use
  Company Number: US-MERCK-0508USA03231

PATIENT
  Age: 87 Year
  Sex: Male
  Weight: 67 kg

DRUGS (6)
  1. VIOXX [Suspect]
     Indication: TENDONITIS
     Route: 048
     Dates: start: 19990609, end: 20000518
  2. VIOXX [Suspect]
     Route: 048
     Dates: start: 20020613, end: 20040110
  3. VIOXX [Suspect]
     Indication: IMPINGEMENT SYNDROME
     Route: 048
     Dates: start: 19990609, end: 20000518
  4. VIOXX [Suspect]
     Route: 048
     Dates: start: 20020613, end: 20040110
  5. COZAAR [Suspect]
     Route: 048
     Dates: end: 20021203
  6. ASPIRIN [Concomitant]
     Route: 065

REACTIONS (17)
  - ACUTE MYOCARDIAL INFARCTION [None]
  - ACUTE RESPIRATORY FAILURE [None]
  - ANGINA UNSTABLE [None]
  - ARTHRALGIA [None]
  - ATRIAL FIBRILLATION [None]
  - CARDIO-RESPIRATORY ARREST [None]
  - CHRONIC OBSTRUCTIVE PULMONARY DISEASE [None]
  - CONSTIPATION [None]
  - CORONARY ARTERY DISEASE [None]
  - DEPRESSION [None]
  - EPISTAXIS [None]
  - EYE DISORDER [None]
  - HAEMOGLOBIN DECREASED [None]
  - HYPERTENSION [None]
  - OEDEMA PERIPHERAL [None]
  - STENT OCCLUSION [None]
  - TACHYCARDIA [None]
